FAERS Safety Report 23754138 (Version 2)
Quarter: 2025Q2

REPORT INFORMATION
  Report Type: Report from Study
  Country: US (occurrence: US)
  Receive Date: 20240417
  Receipt Date: 20250617
  Transmission Date: 20250716
  Serious: Yes (Hospitalization, Other)
  Sender: ABBVIE
  Company Number: US-ABBVIE-5720662

PATIENT
  Sex: Female

DRUGS (2)
  1. HUMIRA [Suspect]
     Active Substance: ADALIMUMAB
     Indication: Colitis ulcerative
     Route: 058
  2. HUMIRA [Suspect]
     Active Substance: ADALIMUMAB
     Route: 058
     Dates: start: 2020

REACTIONS (11)
  - Mitral valve stenosis [Unknown]
  - Cardiac operation [Unknown]
  - Colitis ulcerative [Not Recovered/Not Resolved]
  - Peripheral swelling [Unknown]
  - Feeling of body temperature change [Not Recovered/Not Resolved]
  - Drug withdrawal syndrome [Not Recovered/Not Resolved]
  - Abdominal discomfort [Unknown]
  - Joint swelling [Unknown]
  - Hypertension [Unknown]
  - Pain [Unknown]
  - Vomiting [Unknown]
